FAERS Safety Report 8885528 (Version 1)
Quarter: 2012Q4

REPORT INFORMATION
  Report Type: 
  Country: US (occurrence: US)
  Receive Date: 20121101
  Receipt Date: 20121101
  Transmission Date: 20130627
  Serious: Yes (Other)
  Sender: FDA-Public Use
  Company Number: US-PFIZER INC-2012269908

PATIENT
  Age: 38 Year
  Sex: Male
  Weight: 116.5 kg

DRUGS (12)
  1. EFFEXOR [Suspect]
     Dosage: 150 mg, in the morning
  2. ABILIFY [Suspect]
     Dosage: UNK
  3. KLONOPIN [Concomitant]
     Dosage: 0.5 mg one tablet  three times daily as needed
  4. CATAPRES [Concomitant]
     Dosage: 0.2 mg, 2x/day
     Route: 048
  5. GABAPENTIN [Concomitant]
     Dosage: 3600 mg, daily
  6. LITHIUM [Concomitant]
     Dosage: 300 mg, 2x/day
  7. LOPRESSOR [Concomitant]
     Dosage: 25 mg, 2x/day
     Route: 048
  8. ZYPREXA [Concomitant]
     Dosage: 2.5 mg, daily
  9. PAXIL [Concomitant]
     Dosage: 20 mg, 2 tablets at bedtime
  10. ULTRAM [Concomitant]
     Dosage: 50 mg tablet three times daily as needed
     Dates: start: 20121005
  11. VISTARIL [Concomitant]
     Dosage: 25 mg, 1 tab in the a.m. and 2 at bedtime
  12. DICLOFENAC [Concomitant]
     Dosage: 50 mg, 2x/day

REACTIONS (6)
  - Somnambulism [Unknown]
  - Dyskinesia [Unknown]
  - Face injury [Unknown]
  - Fall [Unknown]
  - Memory impairment [Unknown]
  - Confusional state [Unknown]
